FAERS Safety Report 7587516-4 (Version None)
Quarter: 2011Q3

REPORT INFORMATION
  Report Type: 
  Country: None (occurrence: None)
  Receive Date: 20110704
  Receipt Date: 20110620
  Transmission Date: 20111222
  Serious: Yes (Hospitalization, Other)
  Sender: FDA-Public Use
  Company Number: US-ELI_LILLY_AND_COMPANY-US201105005212

PATIENT
  Sex: Female

DRUGS (1)
  1. FORTEO [Suspect]
     Dosage: UNK, UNKNOWN
     Route: 065

REACTIONS (6)
  - FALL [None]
  - KIDNEY INFECTION [None]
  - ARTHROPATHY [None]
  - HIP FRACTURE [None]
  - MUSCULOSKELETAL DISORDER [None]
  - MALAISE [None]
